FAERS Safety Report 8846999 (Version 1)
Quarter: 2012Q4

REPORT INFORMATION
  Report Type: 
  Country: NO (occurrence: NO)
  Receive Date: 20121018
  Receipt Date: 20121018
  Transmission Date: 20130627
  Serious: Yes (Death, Other)
  Sender: FDA-Public Use
  Company Number: NO-SANOFI-AVENTIS-2012SA074690

PATIENT
  Age: 71 Year
  Sex: Female

DRUGS (5)
  1. ARAVA [Suspect]
     Indication: RHEUMATOID ARTHRITIS
     Route: 065
     Dates: start: 20021024, end: 20120710
  2. PREDNISOLON [Concomitant]
     Indication: POLYMYALGIA RHEUMATICA
     Dosage: Initial dose was 20 mg/day for 14 days , then reduced to 10 mg/day
     Dates: start: 20120701
  3. FOLIC ACID [Concomitant]
     Dosage: Every day except tuesday
  4. METHOTREXAT [Concomitant]
     Indication: RHEUMATOID ARTHRITIS
     Dates: end: 20120710
  5. DIURAL [Concomitant]

REACTIONS (6)
  - Multi-organ failure [Fatal]
  - Sepsis [Fatal]
  - Pneumocystis jiroveci infection [Not Recovered/Not Resolved]
  - Cytomegalovirus infection [Not Recovered/Not Resolved]
  - Candidiasis [Not Recovered/Not Resolved]
  - Enterococcal infection [Not Recovered/Not Resolved]
